FAERS Safety Report 5009955-8 (Version None)
Quarter: 2006Q2

REPORT INFORMATION
  Report Type: 
  Country: None (occurrence: None)
  Receive Date: 20060522
  Receipt Date: 20060516
  Transmission Date: 20061013
  Serious: Yes (Hospitalization, Other)
  Sender: FDA-Public Use
  Company Number: 2005098900

PATIENT
  Age: 31 Year
  Sex: Female
  Weight: 108.2 kg

DRUGS (2)
  1. SOMAVERT [Suspect]
     Indication: ACROMEGALY
     Dosage: 30 MG DAILY
     Dates: start: 20040217
  2. SANDOSTATIN [Concomitant]

REACTIONS (1)
  - PITUITARY TUMOUR BENIGN [None]
